FAERS Safety Report 25703979 (Version 1)
Quarter: 2025Q3

REPORT INFORMATION
  Report Type: Spontaneous
  Country: US (occurrence: US)
  Receive Date: 20250820
  Receipt Date: 20250820
  Transmission Date: 20251020
  Serious: Yes (Other)
  Sender: RECKITT BENCKISER
  Company Number: US-PROD-AS2-212756134-20-25-USA-RB-0002588

PATIENT
  Age: 60 Year
  Sex: Male

DRUGS (5)
  1. DELSYM COUGH [Suspect]
     Active Substance: DEXTROMETHORPHAN HYDROBROMIDE
     Indication: Nasopharyngitis
     Dosage: 1 DF, QD (ONCE A DAY)
     Route: 048
     Dates: start: 20250213, end: 20250213
  2. DELSYM COUGH [Suspect]
     Active Substance: DEXTROMETHORPHAN HYDROBROMIDE
     Indication: Nasopharyngitis
     Dosage: 1 DF, QD (ONCE A DAY)
     Route: 048
     Dates: start: 20250213, end: 20250213
  3. DELSYM COUGH [Suspect]
     Active Substance: DEXTROMETHORPHAN HYDROBROMIDE
     Indication: Rhinorrhoea
  4. DELSYM COUGH [Suspect]
     Active Substance: DEXTROMETHORPHAN HYDROBROMIDE
     Indication: Cough
  5. ELIQUIS [Concomitant]
     Active Substance: APIXABAN
     Indication: Pulmonary hypertension
     Dosage: UNKNOWN, BID (TWO TIMES A DAY)
     Route: 065

REACTIONS (6)
  - Loss of consciousness [Recovered/Resolved]
  - Abdominal pain upper [Recovered/Resolved]
  - Headache [Recovered/Resolved]
  - Product use in unapproved indication [Recovered/Resolved]
  - Diarrhoea [Recovered/Resolved]
  - Nausea [Recovered/Resolved]

NARRATIVE: CASE EVENT DATE: 20250212
